FAERS Safety Report 13524007 (Version 1)
Quarter: 2017Q2

REPORT INFORMATION
  Report Type: Spontaneous
  Country: NL (occurrence: NL)
  Receive Date: 20170508
  Receipt Date: 20170508
  Transmission Date: 20170830
  Serious: Yes (Life-Threatening, Hospitalization)
  Sender: FDA-Public Use
  Company Number: PHHY2017NL066046

PATIENT
  Age: 33 Year
  Sex: Male
  Weight: 70 kg

DRUGS (3)
  1. RIAMET [Suspect]
     Active Substance: ARTEMETHER\LUMEFANTRINE
     Indication: MALARIA
     Dosage: 560 MG, (PER TIME)
     Route: 065
     Dates: start: 20170424, end: 20170428
  2. ARTESUNATE [Suspect]
     Active Substance: ARTESUNATE
     Indication: PRODUCT USED FOR UNKNOWN INDICATION
     Dosage: 180 MG, (1DD APPROXIMATELY 180 MG)
     Route: 042
     Dates: start: 20170420, end: 20170424
  3. ACETAMINOPHEN AND CODEINE [Concomitant]
     Active Substance: ACETAMINOPHEN\CODEINE PHOSPHATE
     Indication: PRODUCT USED FOR UNKNOWN INDICATION
     Dosage: 4 DF, BID (4DD2)
     Route: 065
     Dates: start: 20170427

REACTIONS (1)
  - Haemolysis [Recovering/Resolving]

NARRATIVE: CASE EVENT DATE: 20170428
